FAERS Safety Report 16184603 (Version 1)
Quarter: 2019Q2

REPORT INFORMATION
  Report Type: Report from Study
  Country: US (occurrence: US)
  Receive Date: 20190411
  Receipt Date: 20190411
  Transmission Date: 20190711
  Serious: No
  Sender: FDA-Public Use
  Company Number: PHEH2019US015496

PATIENT
  Sex: Male

DRUGS (1)
  1. COSENTYX [Suspect]
     Active Substance: SECUKINUMAB
     Route: 058

REACTIONS (5)
  - Malaise [Unknown]
  - Pharyngitis [Unknown]
  - Decreased immune responsiveness [Unknown]
  - Drug ineffective [Unknown]
  - Influenza [Unknown]
